FAERS Safety Report 11003757 (Version 2)
Quarter: 2015Q4

REPORT INFORMATION
  Report Type: Spontaneous
  Country: JP (occurrence: JP)
  Receive Date: 20150409
  Receipt Date: 20151009
  Transmission Date: 20160304
  Serious: Yes (Other)
  Sender: FDA-Public Use
  Company Number: JP-ROCHE-1562115

PATIENT
  Sex: Female
  Weight: 46 kg

DRUGS (10)
  1. OLMETEC [Concomitant]
     Active Substance: OLMESARTAN MEDOXOMIL
     Route: 065
  2. LENDORMIN [Concomitant]
     Active Substance: BROTIZOLAM
     Route: 065
  3. XOLAIR [Suspect]
     Active Substance: OMALIZUMAB
     Indication: ASTHMA
     Route: 058
  4. UNIPHYL [Concomitant]
     Active Substance: THEOPHYLLINE ANHYDROUS
     Route: 065
  5. TAKEPRON [Concomitant]
     Active Substance: LANSOPRAZOLE
     Route: 065
  6. MUCOSOLVAN [Concomitant]
     Active Substance: AMBROXOL HYDROCHLORIDE
     Route: 065
  7. MONTELUKAST [Concomitant]
     Active Substance: MONTELUKAST SODIUM
     Route: 065
  8. SULTANOL [Concomitant]
     Active Substance: ALBUTEROL SULFATE
     Route: 065
  9. PREDNISOLONE. [Concomitant]
     Active Substance: PREDNISOLONE
     Route: 065
     Dates: start: 2014, end: 2014
  10. FLUTIFORM [Concomitant]
     Active Substance: FLUTICASONE PROPIONATE\FORMOTEROL FUMARATE
     Route: 065

REACTIONS (4)
  - Osteoarthritis [Unknown]
  - Crystal arthropathy [Unknown]
  - Dry mouth [Unknown]
  - Rheumatoid arthritis [Recovered/Resolved]
